FAERS Safety Report 10517524 (Version 2)
Quarter: 2015Q1

REPORT INFORMATION
  Report Type: Report from Study
  Country: BR (occurrence: BR)
  Receive Date: 20141014
  Receipt Date: 20150202
  Transmission Date: 20150720
  Serious: No
  Sender: FDA-Public Use
  Company Number: BR-ABBVIE-14K-020-1294285-00

PATIENT
  Age: 76 Year
  Sex: Male
  Weight: 70 kg

DRUGS (1)
  1. HUMIRA [Suspect]
     Active Substance: ADALIMUMAB
     Indication: PSORIATIC ARTHROPATHY
     Route: 058
     Dates: start: 20131010, end: 20140414

REACTIONS (2)
  - Skin exfoliation [Recovered/Resolved]
  - Poisoning [Recovered/Resolved]

NARRATIVE: CASE EVENT DATE: 201404
